FAERS Safety Report 9893155 (Version 5)
Quarter: 2014Q1

REPORT INFORMATION
  Report Type: Report from Study
  Country: CA (occurrence: CA)
  Receive Date: 20140213
  Receipt Date: 20140318
  Transmission Date: 20141002
  Serious: Yes (Other)
  Sender: FDA-Public Use
  Company Number: CA-ROCHE-1265981

PATIENT
  Age: 46 Year
  Sex: Female
  Weight: 119 kg

DRUGS (14)
  1. AVASTIN [Suspect]
     Indication: GLIOBLASTOMA
     Route: 042
     Dates: start: 20130704
  2. AVASTIN [Suspect]
     Route: 042
     Dates: start: 20130828
  3. AVASTIN [Suspect]
     Route: 042
     Dates: start: 20131029
  4. AVASTIN [Suspect]
     Route: 042
     Dates: start: 20140108
  5. COUMADIN [Suspect]
     Indication: PRODUCT USED FOR UNKNOWN INDICATION
     Route: 065
  6. PAXIL [Concomitant]
  7. KEPPRA [Concomitant]
  8. DECADRON [Concomitant]
     Dosage: TO BE DECREASED POSSIBLY WITH INTRODUCTION OF BEVECIZUMAB.
     Route: 065
  9. DECADRON [Concomitant]
     Dosage: RESTARTED
     Route: 048
     Dates: start: 20140128
  10. ZANTAC [Concomitant]
  11. INNOHEP [Concomitant]
  12. STEMETIL [Concomitant]
  13. ZOFRAN [Concomitant]
  14. CLOBAZAM [Concomitant]
     Route: 048

REACTIONS (10)
  - Arthralgia [Not Recovered/Not Resolved]
  - Grand mal convulsion [Recovered/Resolved]
  - Fall [Not Recovered/Not Resolved]
  - Hemiparesis [Not Recovered/Not Resolved]
  - Weight increased [Not Recovered/Not Resolved]
  - Tremor [Unknown]
  - Blood test abnormal [Unknown]
  - Neoplasm [Unknown]
  - Platelet count decreased [Not Recovered/Not Resolved]
  - Contusion [Not Recovered/Not Resolved]
